FAERS Safety Report 10866419 (Version 1)
Quarter: 2015Q1

REPORT INFORMATION
  Report Type: Spontaneous
  Country: US (occurrence: None)
  Receive Date: 20150219
  Receipt Date: 20150219
  Transmission Date: 20150721
  Serious: No
  Sender: FDA-Public Use
  Company Number: None

PATIENT
  Age: 63 Year
  Sex: Male

DRUGS (4)
  1. TRIAMCINOLONE CREAM [Concomitant]
  2. ONDANSETRON [Concomitant]
     Active Substance: ONDANSETRON
  3. INTRON A [Suspect]
     Active Substance: INTERFERON ALFA-2B
     Indication: PLASMA CELL MYELOMA
     Dosage: 20 MU/2 ML; Q MON, WED, FRIDAY
     Route: 058
     Dates: start: 20150206, end: 20150218
  4. LEVOTHYROXINE [Concomitant]
     Active Substance: LEVOTHYROXINE

REACTIONS (9)
  - Chills [None]
  - Weight decreased [None]
  - Fatigue [None]
  - Headache [None]
  - Constipation [None]
  - Myalgia [None]
  - Dry mouth [None]
  - Decreased appetite [None]
  - Dizziness [None]

NARRATIVE: CASE EVENT DATE: 20150218
